FAERS Safety Report 18194787 (Version 1)
Quarter: 2020Q3

REPORT INFORMATION
  Report Type: Spontaneous
  Country: FR (occurrence: FR)
  Receive Date: 20200825
  Receipt Date: 20200825
  Transmission Date: 20201103
  Serious: Yes (Hospitalization)
  Sender: FDA-Public Use
  Company Number: FR-ASTRAZENECA-2020SF04008

PATIENT
  Age: 68 Year
  Sex: Male

DRUGS (3)
  1. INEGY [Suspect]
     Active Substance: EZETIMIBE\SIMVASTATIN
     Indication: PROPHYLAXIS
     Dosage: STRENGHT: 10 MG/40 MG.1 DF
     Route: 048
     Dates: start: 20200619, end: 20200621
  2. PROPOFOL. [Suspect]
     Active Substance: PROPOFOL
     Indication: STATUS EPILEPTICUS
     Dosage: 300.0MG UNKNOWN
     Route: 042
     Dates: start: 20200618, end: 20200619
  3. INEXIUM [Suspect]
     Active Substance: ESOMEPRAZOLE
     Indication: PROPHYLAXIS
     Dosage: 40.0MG UNKNOWN
     Route: 042
     Dates: start: 20200618, end: 20200619

REACTIONS (1)
  - Rhabdomyolysis [Not Recovered/Not Resolved]

NARRATIVE: CASE EVENT DATE: 20200620
